FAERS Safety Report 7372481-5 (Version None)
Quarter: 2011Q1

REPORT INFORMATION
  Report Type: 
  Country: None (occurrence: None)
  Receive Date: 20110324
  Receipt Date: 20110317
  Transmission Date: 20110831
  Serious: Yes (Death)
  Sender: FDA-Public Use
  Company Number: BE-SANOFI-AVENTIS-2011SA017113

PATIENT
  Age: 63 Year
  Sex: Male

DRUGS (4)
  1. XELODA [Suspect]
     Indication: RECTAL CANCER
     Route: 048
     Dates: start: 20100727, end: 20100827
  2. ELOXATIN [Suspect]
     Indication: RECTAL CANCER
     Route: 042
     Dates: start: 20100727, end: 20100727
  3. THERAPEUTIC RADIOPHARMACEUTICALS [Suspect]
     Indication: RECTAL CANCER
     Dates: start: 20100727, end: 20100827
  4. ELOXATIN [Suspect]
     Route: 042
     Dates: start: 20100827, end: 20100827

REACTIONS (1)
  - DEATH [None]
